FAERS Safety Report 21760704 (Version 1)
Quarter: 2022Q4

REPORT INFORMATION
  Report Type: Spontaneous
  Country: US (occurrence: None)
  Receive Date: 20221220
  Receipt Date: 20221220
  Transmission Date: 20230113
  Serious: Yes (Death)
  Sender: FDA-Public Use
  Company Number: None

PATIENT
  Sex: Male

DRUGS (9)
  1. SILDENAFIL [Suspect]
     Active Substance: SILDENAFIL
     Indication: Cardiac failure congestive
     Dosage: 10 MG/ML ORAL??TAKE 1 ML BY MOUTH EVERY 8 HOURS
     Route: 048
     Dates: start: 20220825
  2. ACETAMINOPHN SUS [Concomitant]
  3. ALDACTONE TAB [Concomitant]
  4. LASIX TAB [Concomitant]
  5. LOVENOX INJ [Concomitant]
  6. MOTRIN CHILD SUS [Concomitant]
  7. VITAMINS [Concomitant]
     Active Substance: VITAMINS
  8. PHENOBARB ELX [Concomitant]
  9. PRILOSEC POW [Concomitant]

REACTIONS (1)
  - Death [None]
